FAERS Safety Report 7310575 (Version 2)
Quarter: 2013Q3

REPORT INFORMATION
  Report Type: Spontaneous
  Country: US (occurrence: US)
  Receive Date: 20100310
  Receipt Date: 20130930
  Transmission Date: 20140515
  Serious: Yes (Death, Hospitalization)
  Sender: FDA-Public Use
  Company Number: US-BIOGENIDEC-2010BI007070

PATIENT
  Age: 60 Year
  Sex: Female

DRUGS (1)
  1. AVONEX [Suspect]
     Indication: MULTIPLE SCLEROSIS
     Route: 030

REACTIONS (12)
  - Diabetes mellitus [Fatal]
  - Renal failure [Fatal]
  - Blood pressure decreased [Fatal]
  - Gait disturbance [Unknown]
  - Fall [Recovered/Resolved]
  - Femur fracture [Unknown]
  - Rib fracture [Unknown]
  - Urinary tract infection [Unknown]
  - Pain [Unknown]
  - Dyspnoea [Unknown]
  - Asthenia [Unknown]
  - Abdominal distension [Unknown]
